FAERS Safety Report 7306776-8 (Version None)
Quarter: 2011Q1

REPORT INFORMATION
  Report Type: 
  Country: None (occurrence: None)
  Receive Date: 20110222
  Receipt Date: 20110107
  Transmission Date: 20110831
  Serious: Yes (Other)
  Sender: FDA-Public Use
  Company Number: US-BAYER-200827427NA

PATIENT
  Sex: Female
  Weight: 109 kg

DRUGS (54)
  1. MAGNEVIST [Suspect]
  2. OPTIMARK [Suspect]
     Indication: NUCLEAR MAGNETIC RESONANCE IMAGING
  3. EPOGEN [Concomitant]
  4. RENAGEL [Concomitant]
  5. ZEMPLAR [Concomitant]
  6. PLAVIX [Concomitant]
  7. FLONASE [Concomitant]
  8. OPTIMARK [Suspect]
     Indication: ANGIOGRAM
  9. PROHANCE [Suspect]
     Indication: ANGIOGRAM
  10. PROHANCE [Suspect]
     Indication: NUCLEAR MAGNETIC RESONANCE IMAGING
  11. IRON [IRON] [Concomitant]
  12. VISIPAQUE [IODINE,IODIXANOL] [Concomitant]
     Indication: AORTOGRAM
     Dates: start: 20050616, end: 20050616
  13. ZOLOFT [Concomitant]
  14. OMNISCAN [Suspect]
     Indication: ANGIOGRAM
  15. EVISTA [Concomitant]
  16. PREDNISONE [Concomitant]
  17. TIMOLOL [Concomitant]
  18. TRICOR [Concomitant]
  19. PERCOCET [Concomitant]
  20. RESTORIL [Concomitant]
  21. HOMATROPINE [Concomitant]
  22. MULTIHANCE [Suspect]
     Indication: NUCLEAR MAGNETIC RESONANCE IMAGING
  23. INSULIN [Concomitant]
  24. CELEBREX [Concomitant]
  25. SYNTHROID [Concomitant]
  26. DIATX [Concomitant]
  27. MULTIHANCE [Suspect]
     Indication: NUCLEAR MAGNETIC RESONANCE IMAGING ABDOMINAL
     Route: 042
     Dates: start: 20050707, end: 20050707
  28. GADOLINIUM IN UNSPECIFIED DRUG [Suspect]
     Dates: start: 19980706, end: 19980706
  29. ASPIRIN [Concomitant]
  30. SENSIPAR [Concomitant]
  31. PHOSLO [Concomitant]
  32. IBUPROFEN [Concomitant]
  33. OMNISCAN [Suspect]
     Indication: NUCLEAR MAGNETIC RESONANCE IMAGING
  34. GADOLINIUM IN UNSPECIFIED DRUG [Suspect]
     Dosage: STATED BY PATIENT IN A PHYSICIAN'S NOTE; NO RADIOLOGY REPORT; NOT STATED IN PFS
     Dates: start: 20070801, end: 20070801
  35. CELL CEPT [Concomitant]
     Indication: PROPHYLAXIS AGAINST TRANSPLANT REJECTION
  36. TEMAZEPAM [Concomitant]
  37. EVISTA [Concomitant]
  38. PRILOSEC [Concomitant]
  39. PROAMATINE [Concomitant]
  40. MIACALCIN [Concomitant]
  41. LORATADINE [Concomitant]
  42. MAGNEVIST [Suspect]
     Indication: NUCLEAR MAGNETIC RESONANCE IMAGING
     Dates: start: 19980824, end: 19980824
  43. MAGNEVIST [Suspect]
     Indication: ANGIOGRAM
  44. GADOLINIUM IN UNSPECIFIED DRUG [Suspect]
     Dates: start: 20020820, end: 20020820
  45. NEPHROCAPS [Concomitant]
  46. LEVOTHYROXINE SODIUM [Concomitant]
  47. HUMALOG [Concomitant]
  48. ZOCOR [Concomitant]
  49. PARICALCITOL [Concomitant]
  50. LIPITOR [Concomitant]
  51. COLACE [Concomitant]
  52. CILOSTAZOL [Concomitant]
  53. PROGRAF [Concomitant]
  54. EPOGEN [Concomitant]

REACTIONS (15)
  - JOINT RANGE OF MOTION DECREASED [None]
  - MUSCLE TIGHTNESS [None]
  - ANXIETY [None]
  - ASTHENIA [None]
  - SKIN TIGHTNESS [None]
  - MUSCULOSKELETAL STIFFNESS [None]
  - GRIEF REACTION [None]
  - PAIN [None]
  - SKIN HYPERPIGMENTATION [None]
  - NEPHROGENIC SYSTEMIC FIBROSIS [None]
  - FIBROSIS [None]
  - QUALITY OF LIFE DECREASED [None]
  - MOBILITY DECREASED [None]
  - OEDEMA PERIPHERAL [None]
  - EMOTIONAL DISTRESS [None]
